FAERS Safety Report 8478954-6 (Version None)
Quarter: 2012Q2

REPORT INFORMATION
  Report Type: 
  Country: None (occurrence: None)
  Receive Date: 20120629
  Receipt Date: 20120620
  Transmission Date: 20120825
  Serious: Yes (Hospitalization)
  Sender: FDA-Public Use
  Company Number: FR-JNJFOC-20120611279

PATIENT
  Age: 38 Year
  Sex: Male

DRUGS (4)
  1. PROGRAF [Suspect]
     Indication: CROHN'S DISEASE
     Route: 048
     Dates: start: 20010101
  2. REMICADE [Suspect]
     Indication: CROHN'S DISEASE
     Dosage: RECEIVED 5 INFUSIONS
     Route: 042
     Dates: start: 20050901, end: 20060301
  3. REMICADE [Suspect]
     Dosage: RECEIVED 5 INFUSIONS
     Route: 042
     Dates: start: 20010101, end: 20010101
  4. IMURAN [Suspect]
     Indication: CROHN'S DISEASE
     Route: 048
     Dates: start: 20010101, end: 20040101

REACTIONS (2)
  - DRUG INEFFECTIVE [None]
  - COLON CANCER [None]
